FAERS Safety Report 4308332-2 (Version None)
Quarter: 2004Q1

REPORT INFORMATION
  Report Type: 
  Country: None (occurrence: None)
  Receive Date: 20040301
  Receipt Date: 20040204
  Transmission Date: 20041129
  Serious: Yes (Hospitalization)
  Sender: FDA-Public Use
  Company Number: US-BRISTOL-MYERS SQUIBB COMPANY-12496527

PATIENT
  Age: 60 Year
  Sex: Male

DRUGS (13)
  1. TEQUIN [Suspect]
     Indication: OSTEOMYELITIS
     Route: 048
     Dates: start: 20031016, end: 20030101
  2. VANCOMYCIN [Concomitant]
  3. PROTONIX [Concomitant]
  4. REGLAN [Concomitant]
  5. NASACORT [Concomitant]
  6. COLACE [Concomitant]
  7. TOPROL-XL [Concomitant]
  8. FLOMAX [Concomitant]
  9. AVODART [Concomitant]
  10. MEGACE [Concomitant]
  11. PHOSLO [Concomitant]
  12. ALEVE [Concomitant]
  13. ASPIRIN [Concomitant]

REACTIONS (2)
  - HYPERGLYCAEMIA [None]
  - MENTAL STATUS CHANGES [None]
